FAERS Safety Report 5716238-7 (Version None)
Quarter: 2008Q2

REPORT INFORMATION
  Report Type: 
  Country: None (occurrence: None)
  Receive Date: 20080424
  Receipt Date: 20080415
  Transmission Date: 20081010
  Serious: Yes (Hospitalization)
  Sender: FDA-Public Use
  Company Number: A0698381A

PATIENT
  Age: 75 Year
  Sex: Male
  Weight: 102.7 kg

DRUGS (3)
  1. ADVAIR HFA [Suspect]
     Indication: EMPHYSEMA
     Route: 055
  2. COMBIVENT [Concomitant]
  3. UNKNOWN MEDICATION [Concomitant]

REACTIONS (5)
  - ASTHENIA [None]
  - COUGH [None]
  - DEPRESSION [None]
  - MOBILITY DECREASED [None]
  - POOR QUALITY SLEEP [None]
